FAERS Safety Report 7224110-9 (Version None)
Quarter: 2011Q1

REPORT INFORMATION
  Report Type: 
  Country: None (occurrence: None)
  Receive Date: 20110106
  Receipt Date: 20110106
  Transmission Date: 20110831
  Serious: Yes (Hospitalization)
  Sender: FDA-Public Use
  Company Number: None

PATIENT
  Age: 64 Year
  Sex: Female
  Weight: 94 kg

DRUGS (13)
  1. NEURONTIN [Concomitant]
  2. NEXIUM [Concomitant]
  3. LEVOTHYROXINE [Concomitant]
  4. SIMCOR [Suspect]
     Indication: HYPERLIPIDAEMIA
     Dosage: 500- 20 X4 QHS PO CHRONIC
     Route: 048
  5. TUSSIONEX [Concomitant]
  6. ASPIRIN [Concomitant]
  7. LANTUS [Concomitant]
  8. CYMBALTA [Concomitant]
  9. TRILIPIX [Concomitant]
  10. MAXICHLOR [Concomitant]
  11. SPIRONOLACTONE [Concomitant]
  12. NOVOLOG [Concomitant]
  13. LASIX [Concomitant]

REACTIONS (3)
  - RENAL FAILURE ACUTE [None]
  - RHABDOMYOLYSIS [None]
  - HYPERKALAEMIA [None]
